FAERS Safety Report 5247634-2 (Version None)
Quarter: 2007Q1

REPORT INFORMATION
  Report Type: 
  Country: None (occurrence: None)
  Receive Date: 20070223
  Receipt Date: 20070223
  Transmission Date: 20070707
  Serious: Yes (Other)
  Sender: FDA-Public Use
  Company Number: None

PATIENT
  Age: 39 Year
  Sex: Female
  Weight: 58.9676 kg

DRUGS (1)
  1. ZICAM NASAL GEL COLD REMEDY ZICAM [Suspect]
     Indication: NASOPHARYNGITIS
     Dosage: AS INSTRUCTED
     Dates: start: 20060315, end: 20060320

REACTIONS (2)
  - ANOSMIA [None]
  - NASAL OEDEMA [None]
